FAERS Safety Report 7777199-2 (Version None)
Quarter: 2011Q3

REPORT INFORMATION
  Report Type: 
  Country: None (occurrence: None)
  Receive Date: 20110926
  Receipt Date: 20110919
  Transmission Date: 20111222
  Serious: Yes (Other)
  Sender: FDA-Public Use
  Company Number: AU-ALLERGAN-1112474US

PATIENT
  Age: 64 Year
  Sex: Female

DRUGS (4)
  1. FML [Suspect]
     Dosage: 2 GTT, QD
     Route: 047
  2. LEVOTHYROXINE SODIUM [Concomitant]
     Indication: HYPOTHYROIDISM
     Dosage: 150 A?G, UNK
  3. CALCIUM CARBONATE [Concomitant]
     Dosage: 3 UNK, QD
  4. FML [Suspect]
     Indication: HERPES ZOSTER OPHTHALMIC
     Dosage: 1 GTT, QD
     Route: 047

REACTIONS (1)
  - ULCERATIVE KERATITIS [None]
